FAERS Safety Report 4521983-5 (Version None)
Quarter: 2004Q4

REPORT INFORMATION
  Report Type: 
  Country: None (occurrence: None)
  Receive Date: 20041206
  Receipt Date: 20041123
  Transmission Date: 20050328
  Serious: Yes (Hospitalization)
  Sender: FDA-Public Use
  Company Number: 2004098236

PATIENT
  Age: 77 Year
  Sex: Female

DRUGS (9)
  1. ATORVASTATIN (ATORVASTATIN) [Suspect]
     Indication: ILL-DEFINED DISORDER
  2. ROSUVASTATIN (ROSUVASTATIN) [Suspect]
     Indication: ILL-DEFINED DISORDER
     Dosage: 20 MG (1 IN 1 D)
     Dates: end: 20040101
  3. ZOLPIDEM TARTRATE [Concomitant]
  4. ENALAPRIL (ENALAPRIL) [Concomitant]
  5. LEVOTHYROXINE SODIUM [Concomitant]
  6. SALSALATE (SALSALATE) [Concomitant]
  7. TRAMADOL HCL [Concomitant]
  8. VENLAFAXINE (VENLAFAXINE) [Concomitant]
  9. LISINOPRIL [Concomitant]

REACTIONS (4)
  - MICROLITHIASIS [None]
  - PANCREATITIS [None]
  - PHOTOSENSITIVITY REACTION [None]
  - RASH MACULO-PAPULAR [None]
